FAERS Safety Report 17082813 (Version 1)
Quarter: 2019Q4

REPORT INFORMATION
  Report Type: Spontaneous
  Country: US (occurrence: US)
  Receive Date: 20191127
  Receipt Date: 20191127
  Transmission Date: 20200122
  Serious: Yes (Hospitalization)
  Sender: FDA-Public Use
  Company Number: US-PFIZER INC-2019507281

PATIENT
  Age: 61 Year
  Sex: Female

DRUGS (1)
  1. CAMPTOSAR [Suspect]
     Active Substance: IRINOTECAN HYDROCHLORIDE
     Indication: RECTAL CANCER METASTATIC
     Dosage: 215 MG, CYCLIC, EVERY 14 DAYS

REACTIONS (2)
  - Nausea [Unknown]
  - Lethargy [Unknown]
